FAERS Safety Report 9709674 (Version 1)
Quarter: 2013Q4

REPORT INFORMATION
  Report Type: Spontaneous
  Country: US (occurrence: US)
  Receive Date: 20131126
  Receipt Date: 20131126
  Transmission Date: 20140711
  Serious: Yes (Hospitalization)
  Sender: FDA-Public Use
  Company Number: US-JNJFOC-20131111666

PATIENT
  Age: 57 Year
  Sex: Male
  Weight: 136.08 kg

DRUGS (11)
  1. INVOKANA [Suspect]
     Indication: DIABETES MELLITUS
     Route: 048
     Dates: start: 20130726, end: 20130826
  2. NOVOLOG [Concomitant]
  3. LANTUS [Concomitant]
  4. CRESTOR [Concomitant]
  5. COUMADIN [Concomitant]
  6. LOVAZA [Concomitant]
  7. LASIX [Concomitant]
  8. ASPIRIN [Concomitant]
  9. VITAMIN B [Concomitant]
  10. VITAMINS NOS [Concomitant]
  11. IRON [Concomitant]

REACTIONS (2)
  - Renal failure [Recovered/Resolved]
  - Hypersensitivity [Recovered/Resolved]
